FAERS Safety Report 15070486 (Version 9)
Quarter: 2019Q1

REPORT INFORMATION
  Report Type: Report from Study
  Country: CA (occurrence: CA)
  Receive Date: 20180626
  Receipt Date: 20190306
  Transmission Date: 20190417
  Serious: Yes (Other)
  Sender: FDA-Public Use
  Company Number: CA-BRISTOL-MYERS SQUIBB COMPANY-BMS-2017-090923

PATIENT
  Age: 63 Year
  Sex: Female

DRUGS (2)
  1. ABATACEPT [Suspect]
     Active Substance: ABATACEPT
     Indication: RHEUMATOID ARTHRITIS
     Dosage: 750 MG, Q4WK
     Route: 042
     Dates: start: 20171002, end: 20180424
  2. METHOTREXATE. [Suspect]
     Active Substance: METHOTREXATE
     Indication: PRODUCT USED FOR UNKNOWN INDICATION
     Dosage: UNK, QWK
     Route: 065

REACTIONS (27)
  - Diarrhoea [Not Recovered/Not Resolved]
  - Mouth ulceration [Not Recovered/Not Resolved]
  - Pruritus [Recovered/Resolved]
  - Pain in extremity [Not Recovered/Not Resolved]
  - White blood cell count decreased [Unknown]
  - Injection site erythema [Recovering/Resolving]
  - Rhinorrhoea [Not Recovered/Not Resolved]
  - Nasopharyngitis [Not Recovered/Not Resolved]
  - Labyrinthitis [Recovered/Resolved]
  - Dysuria [Recovered/Resolved]
  - Laboratory test abnormal [Not Recovered/Not Resolved]
  - Tremor [Unknown]
  - Cough [Not Recovered/Not Resolved]
  - Stress [Not Recovered/Not Resolved]
  - Vaginal infection [Recovered/Resolved]
  - Injection site bruising [Unknown]
  - Eye disorder [Recovering/Resolving]
  - Contusion [Recovered/Resolved]
  - Off label use [Unknown]
  - Pain [Not Recovered/Not Resolved]
  - Condition aggravated [Unknown]
  - Fatigue [Not Recovered/Not Resolved]
  - Discharge [Unknown]
  - Skin exfoliation [Unknown]
  - Oral pain [Unknown]
  - Sinusitis [Not Recovered/Not Resolved]
  - Urinary tract infection [Recovered/Resolved]

NARRATIVE: CASE EVENT DATE: 20171010
